FAERS Safety Report 19875536 (Version 1)
Quarter: 2021Q3

REPORT INFORMATION
  Report Type: Spontaneous
  Country: US (occurrence: US)
  Receive Date: 20210923
  Receipt Date: 20210923
  Transmission Date: 20211014
  Serious: No
  Sender: FDA-Public Use
  Company Number: US-SAREPTA THERAPEUTICS INC.-SRP2021-001634

PATIENT
  Age: 8 Year
  Sex: Male
  Weight: 41.54 kg

DRUGS (2)
  1. VYONDYS 53 [Suspect]
     Active Substance: GOLODIRSEN
     Indication: DUCHENNE MUSCULAR DYSTROPHY
     Dosage: 1100 MILLIGRAM, WEEKLY
     Route: 042
     Dates: start: 20210211, end: 20210806
  2. VYONDYS 53 [Suspect]
     Active Substance: GOLODIRSEN
     Dosage: 1100 MILLIGRAM, WEEKLY
     Route: 042
     Dates: start: 20210824

REACTIONS (2)
  - Poor venous access [Recovered/Resolved]
  - Product dose omission issue [Unknown]

NARRATIVE: CASE EVENT DATE: 20210813
